FAERS Safety Report 25245521 (Version 1)
Quarter: 2025Q2

REPORT INFORMATION
  Report Type: Spontaneous
  Country: CN (occurrence: CN)
  Receive Date: 20250428
  Receipt Date: 20250428
  Transmission Date: 20250716
  Serious: Yes (Life-Threatening, Other)
  Sender: SANDOZ
  Company Number: None

PATIENT
  Age: 67 Year
  Sex: Male
  Weight: 74 kg

DRUGS (5)
  1. DIPRIVAN [Suspect]
     Active Substance: PROPOFOL
     Indication: Induction of anaesthesia
     Dosage: 100 MG, QD
     Route: 065
     Dates: start: 20241122, end: 20241122
  2. EPINEPHRINE HYDROCHLORIDE [Suspect]
     Active Substance: EPINEPHRINE HYDROCHLORIDE
     Indication: Induction of anaesthesia
     Route: 042
  3. CISATRACURIUM BESYLATE [Suspect]
     Active Substance: CISATRACURIUM BESYLATE
     Indication: Induction of anaesthesia
     Dosage: 13 MG, QD
     Route: 042
     Dates: start: 20241122
  4. NOREPINEPHRINE BITARTRATE [Suspect]
     Active Substance: NOREPINEPHRINE BITARTRATE
     Indication: Induction of anaesthesia
     Route: 065
  5. REMIMAZOLAM BESYLATE [Suspect]
     Active Substance: REMIMAZOLAM BESYLATE
     Indication: Induction of anaesthesia
     Dosage: 6.25 MG, QD; FORMULATION: POWDER AND SOLVENT FOR INJECTION
     Route: 042
     Dates: start: 20241122, end: 20241122

REACTIONS (1)
  - Anaphylactic shock [Recovering/Resolving]

NARRATIVE: CASE EVENT DATE: 20241122
